FAERS Safety Report 10900550 (Version 1)
Quarter: 2015Q1

REPORT INFORMATION
  Report Type: Spontaneous
  Country: FR (occurrence: None)
  Receive Date: 20150303
  Receipt Date: 20150303
  Transmission Date: 20150721
  Serious: Yes (Life-Threatening)
  Sender: FDA-Public Use
  Company Number: FK201500957

PATIENT
  Age: 20 Year
  Sex: Female

DRUGS (6)
  1. PROPOFOL FRESENIUS (NOT SPECIFIED) (PROPOFOL) (PROPOFOL) [Suspect]
     Active Substance: PROPOFOL
     Indication: GENERAL ANAESTHESIA
     Route: 042
     Dates: start: 20150108, end: 20150108
  2. HYPNOVEL (MIDAZOLAM) (MIDAZOLAM) [Suspect]
     Active Substance: MIDAZOLAM\MIDAZOLAM HYDROCHLORIDE
     Indication: GENERAL ANAESTHESIA
     Route: 042
     Dates: start: 20150108, end: 20150108
  3. SUFENTANIL [Suspect]
     Active Substance: SUFENTANIL
     Indication: GENERAL ANAESTHESIA
     Route: 042
     Dates: start: 20150108, end: 20150108
  4. ATRACURIUM [Suspect]
     Active Substance: ATRACURIUM
     Indication: GENERAL ANAESTHESIA
     Route: 042
     Dates: start: 20150108, end: 20150108
  5. ROPIVACAINE [Suspect]
     Active Substance: ROPIVACAINE
     Indication: GENERAL ANAESTHESIA
     Route: 042
     Dates: start: 20150108, end: 20150108
  6. DALACINE (CLINDAMYCIN HYDROCHLORIDE) (CLINDAMYCIN HYDROCHLORIDE) [Suspect]
     Active Substance: CLINDAMYCIN HYDROCHLORIDE
     Indication: PROPHYLAXIS
     Route: 042
     Dates: start: 20150108, end: 20150108

REACTIONS (2)
  - Anaphylactic reaction [None]
  - Infusion related reaction [None]

NARRATIVE: CASE EVENT DATE: 20150108
